FAERS Safety Report 8896453 (Version 1)
Quarter: 2012Q4

REPORT INFORMATION
  Report Type: Spontaneous
  Country: GB (occurrence: None)
  Receive Date: 20121102
  Receipt Date: 20121102
  Transmission Date: 20130627
  Serious: Yes (Other)
  Sender: FDA-Public Use
  Company Number: 1475754

PATIENT

DRUGS (1)
  1. PAMIDRONATE [Suspect]
     Indication: OSTEOGENESIS IMPERFECTA
     Dosage: 2010 mg (UNKNOWN) Intravenous (not otherwise specified)
     Route: 042

REACTIONS (2)
  - Atypical femur fracture [None]
  - Bone disorder [None]
